FAERS Safety Report 7124251-0 (Version None)
Quarter: 2010Q4

REPORT INFORMATION
  Report Type: 
  Country: None (occurrence: None)
  Receive Date: 20101126
  Receipt Date: 20101115
  Transmission Date: 20110411
  Serious: Yes (Hospitalization)
  Sender: FDA-Public Use
  Company Number: GXKR2010GB10770

PATIENT
  Age: 89 Year
  Sex: Male

DRUGS (8)
  1. TAMSULOSIN (NGX) [Suspect]
     Indication: BENIGN PROSTATIC HYPERPLASIA
     Dosage: 400 UG, UNK
     Route: 048
     Dates: start: 20100824, end: 20100910
  2. ALFACALCIDOL [Concomitant]
     Dosage: 250 NG, QD
  3. BUSCOPAN [Concomitant]
     Indication: PAIN
     Dosage: 10 MG, PRN
  4. ACETAMINOPHEN WITH PROPOXYPHENE HCL TAB [Concomitant]
     Dosage: 1 DF, PRN
  5. FUROSEMIDE [Concomitant]
     Dosage: 80 MG, QD
  6. LISINOPRIL [Concomitant]
     Dosage: 20 MG, QD
  7. SODIUM BICARBONATE [Concomitant]
     Dosage: 1000 MG, BID
  8. MACROGOL 3350 [Concomitant]
     Dosage: 2 DF, QD
     Route: 048

REACTIONS (2)
  - ABDOMINAL PAIN [None]
  - LIVER FUNCTION TEST ABNORMAL [None]
